FAERS Safety Report 5831292-X (Version None)
Quarter: 2008Q3

REPORT INFORMATION
  Report Type: 
  Country: None (occurrence: None)
  Receive Date: 20080801
  Receipt Date: 20080730
  Transmission Date: 20090109
  Serious: Yes (Hospitalization)
  Sender: FDA-Public Use
  Company Number: BR-BOEHRINGER INGELHEIM GMBH, GERMANY-2008-BP-11968BR

PATIENT
  Age: 52 Year
  Sex: Male

DRUGS (5)
  1. SECOTEX [Suspect]
     Indication: BENIGN PROSTATIC HYPERPLASIA
     Route: 048
  2. BUSCOPAN [Suspect]
     Indication: HAEMATURIA
     Dates: start: 20080717, end: 20080717
  3. METFORMINA [Concomitant]
     Indication: DIABETES MELLITUS
  4. CITALOPRAM HYDROBROMIDE [Concomitant]
     Indication: DEPRESSION
     Route: 048
  5. RIVOTRIL [Concomitant]
     Indication: DEPRESSION

REACTIONS (2)
  - ABDOMINAL PAIN [None]
  - HAEMATURIA [None]
